FAERS Safety Report 16445092 (Version 1)
Quarter: 2019Q2

REPORT INFORMATION
  Report Type: Spontaneous
  Country: US (occurrence: US)
  Receive Date: 20190618
  Receipt Date: 20190618
  Transmission Date: 20190711
  Serious: No
  Sender: FDA-Public Use
  Company Number: US-JNJFOC-20190617993

PATIENT
  Age: 73 Year
  Sex: Female

DRUGS (1)
  1. PALIPERIDONE PALMITATE INJECTION [Suspect]
     Active Substance: PALIPERIDONE PALMITATE
     Indication: SCHIZOAFFECTIVE DISORDER
     Dosage: STARTED 2 YEARS AGO
     Route: 030

REACTIONS (2)
  - Dyspnoea [Unknown]
  - Chest pain [Unknown]
